FAERS Safety Report 4365022-8 (Version None)
Quarter: 2004Q2

REPORT INFORMATION
  Report Type: 
  Country: None (occurrence: None)
  Receive Date: 20040525
  Receipt Date: 20040525
  Transmission Date: 20050107
  Serious: Yes (Other)
  Sender: FDA-Public Use
  Company Number: None

PATIENT
  Age: 59 Year
  Sex: Male
  Weight: 98.8842 kg

DRUGS (1)
  1. DOXAZOSIN 4MG PLVA [Suspect]
     Dosage: 1 DAY ORAL
     Route: 048
     Dates: start: 20040202, end: 20040501

REACTIONS (2)
  - DRUG EFFECT DECREASED [None]
  - MALAISE [None]
